FAERS Safety Report 23471122 (Version 1)
Quarter: 2024Q1

REPORT INFORMATION
  Report Type: Spontaneous
  Country: None (occurrence: US)
  Receive Date: 20240202
  Receipt Date: 20240202
  Transmission Date: 20240410
  Serious: No
  Sender: FDA-Public Use
  Company Number: US-Ascent Pharmaceuticals, Inc.-2152468

PATIENT
  Age: 76 Year
  Sex: Male
  Weight: 100 kg

DRUGS (1)
  1. DUTASTERIDE [Suspect]
     Active Substance: DUTASTERIDE
     Indication: Prostatomegaly
     Route: 048

REACTIONS (2)
  - Polyuria [Recovered/Resolved]
  - Insomnia [Recovered/Resolved]
